FAERS Safety Report 9915012 (Version 2)
Quarter: 2014Q1

REPORT INFORMATION
  Report Type: Report from Study
  Country: US (occurrence: US)
  Receive Date: 20140220
  Receipt Date: 20140220
  Transmission Date: 20141002
  Serious: Yes (Hospitalization)
  Sender: FDA-Public Use
  Company Number: US-ABBVIE-14P-163-1198235-00

PATIENT
  Age: 59 Year
  Sex: Female
  Weight: 72.64 kg

DRUGS (16)
  1. HUMIRA [Suspect]
     Indication: CROHN^S DISEASE
     Dates: start: 2011
  2. ALENDRONATE SODIUM [Concomitant]
     Indication: PRODUCT USED FOR UNKNOWN INDICATION
  3. AMITRIPTYLINE [Concomitant]
     Indication: INSOMNIA
  4. AMITRIPTYLINE [Concomitant]
     Indication: DEPRESSION
  5. AMLODIPINE [Concomitant]
     Indication: HYPERTENSION
  6. CARBAMAZEPINE [Concomitant]
     Indication: NEUROPATHY PERIPHERAL
  7. VITAMIN B-12 [Concomitant]
     Indication: VITAMIN B12 DEFICIENCY
  8. FLEXERIL [Concomitant]
     Indication: PRODUCT USED FOR UNKNOWN INDICATION
  9. LAMOTIL [Concomitant]
     Indication: PRODUCT USED FOR UNKNOWN INDICATION
  10. VITAMIN D [Concomitant]
     Indication: VITAMIN D DEFICIENCY
  11. FOLIC ACID [Concomitant]
     Indication: FOLATE DEFICIENCY
  12. GABAPENTIN [Concomitant]
     Indication: NEUROPATHY PERIPHERAL
  13. MORPHINE [Concomitant]
     Indication: PRODUCT USED FOR UNKNOWN INDICATION
  14. SYMBICORT [Concomitant]
     Indication: CHRONIC OBSTRUCTIVE PULMONARY DISEASE
  15. PREDNISONE [Concomitant]
     Indication: CROHN^S DISEASE
  16. UNKNOWN ANTIBIOTIC [Concomitant]
     Indication: PRODUCT USED FOR UNKNOWN INDICATION

REACTIONS (14)
  - Disorientation [Recovered/Resolved]
  - Overdose [Unknown]
  - Fall [Recovered/Resolved]
  - Back pain [Unknown]
  - Dyspnoea [Recovered/Resolved]
  - Back pain [Recovering/Resolving]
  - Mobility decreased [Recovered/Resolved]
  - Pyrexia [Recovered/Resolved]
  - Back pain [Not Recovered/Not Resolved]
  - Pneumonia [Recovered/Resolved]
  - Pelvic abscess [Recovering/Resolving]
  - Pneumonia [Recovered/Resolved]
  - Pneumonia [Recovered/Resolved]
  - Infection [Recovering/Resolving]
